FAERS Safety Report 12209413 (Version 1)
Quarter: 2016Q1

REPORT INFORMATION
  Report Type: Spontaneous
  Country: US (occurrence: US)
  Receive Date: 20160324
  Receipt Date: 20160324
  Transmission Date: 20160526
  Serious: Yes (Other)
  Sender: FDA-Public Use
  Company Number: US-MDT-ADR-2016-00358

PATIENT
  Sex: Male

DRUGS (9)
  1. COMPOUNDED BACLOFEN [Suspect]
     Active Substance: BACLOFEN
     Dosage: 400MCG/DAY
     Route: 037
  2. LASIX [Suspect]
     Active Substance: FUROSEMIDE
     Dosage: 20 MG/DAY
     Route: 048
  3. ZESTORETIC [Suspect]
     Active Substance: HYDROCHLOROTHIAZIDE\LISINOPRIL
     Dosage: 10/12.5/DAY
     Route: 048
  4. TRENTAL [Suspect]
     Active Substance: PENTOXIFYLLINE
     Dosage: 400 MG TID
     Route: 048
  5. VESICARE [Suspect]
     Active Substance: SOLIFENACIN SUCCINATE
     Dosage: 10 MG 1/2 EVERY DAY
     Route: 048
  6. GLIPIZIDE. [Suspect]
     Active Substance: GLIPIZIDE
     Dosage: 10 MG BID
     Route: 048
  7. VERAPAMIL HCL [Suspect]
     Active Substance: VERAPAMIL HYDROCHLORIDE
     Dosage: 240 MG/DAY
     Route: 048
  8. PRAVASTATIN [Suspect]
     Active Substance: PRAVASTATIN\PRAVASTATIN SODIUM
     Dosage: 20MG /DAY
     Route: 048
  9. NEXIUM [Suspect]
     Active Substance: ESOMEPRAZOLE MAGNESIUM
     Dosage: 40 MG /DAY
     Route: 048

REACTIONS (3)
  - Medical device site infection [None]
  - Medical device site cellulitis [None]
  - Medical device site erosion [None]
